FAERS Safety Report 23325184 (Version 1)
Quarter: 2023Q4

REPORT INFORMATION
  Report Type: Spontaneous
  Country: DK (occurrence: None)
  Receive Date: 20231221
  Receipt Date: 20231221
  Transmission Date: 20240109
  Serious: Yes (Other)
  Sender: FDA-Public Use
  Company Number: DK-MLMSERVICE-20231212-4711227-1

PATIENT
  Age: 56 Year
  Sex: Female

DRUGS (1)
  1. ROPIVACAINE [Suspect]
     Active Substance: ROPIVACAINE
     Indication: Nerve block
     Dosage: ()

REACTIONS (4)
  - Condition aggravated [Unknown]
  - Pain [Unknown]
  - Oedema [Unknown]
  - Skin discolouration [Unknown]
